FAERS Safety Report 5770496-1 (Version None)
Quarter: 2008Q2

REPORT INFORMATION
  Report Type: 
  Country: None (occurrence: None)
  Receive Date: 20080613
  Receipt Date: 20080506
  Transmission Date: 20081010
  Serious: No
  Sender: FDA-Public Use
  Company Number: US-ABBOTT-08P-163-0450530-00

PATIENT
  Sex: Female
  Weight: 120.31 kg

DRUGS (10)
  1. HUMIRA [Suspect]
     Indication: CROHN'S DISEASE
     Route: 058
     Dates: start: 20080506, end: 20080506
  2. HUMIRA [Suspect]
  3. MERCAPTOPURINE [Concomitant]
     Indication: CROHN'S DISEASE
     Route: 048
     Dates: start: 20080101
  4. MESALAMINE [Concomitant]
     Indication: CROHN'S DISEASE
     Route: 048
  5. AMLODIPINE [Concomitant]
     Indication: HYPERTENSION
     Route: 048
  6. FOLIC ACID [Concomitant]
     Indication: DRUG USE FOR UNKNOWN INDICATION
     Route: 048
  7. ENALAPRIL MALEATE [Concomitant]
     Indication: HYPERTENSION
     Route: 048
  8. FERROUS SULFATE TAB [Concomitant]
     Indication: HAEMORRHAGE
     Dosage: 325 X3 TABS DAILY
     Route: 048
  9. PANTOPRAZOLE [Concomitant]
     Indication: HIATUS HERNIA
     Route: 048
  10. OXYCODONE HCL [Concomitant]
     Indication: PAIN
     Route: 048

REACTIONS (1)
  - ACCIDENTAL EXPOSURE [None]
